FAERS Safety Report 7212066-4 (Version None)
Quarter: 2010Q4

REPORT INFORMATION
  Report Type: 
  Country: None (occurrence: None)
  Receive Date: 20101228
  Receipt Date: 20101221
  Transmission Date: 20110411
  Serious: Yes (Hospitalization)
  Sender: FDA-Public Use
  Company Number: 8041225

PATIENT
  Sex: Male
  Weight: 64.9 kg

DRUGS (9)
  1. CERTOLIZYMAB PEGOL [Suspect]
     Indication: RHEUMATOID ARTHRITIS
     Dosage: (400 MG 1X/MONTH, DOSE FREQ.: ONCE MONTHLY SUBCUTANEOUS)
     Route: 058
     Dates: start: 20040218
  2. CEFDINIR [Concomitant]
  3. PREDNISONE [Concomitant]
  4. MIRAPEX [Concomitant]
  5. METHOTREXATE [Concomitant]
  6. XANAX [Concomitant]
  7. AMBIEN [Concomitant]
  8. LEXAPRO [Concomitant]
  9. IBUPROFEN [Concomitant]

REACTIONS (12)
  - ANAL ULCER [None]
  - BODY TEMPERATURE INCREASED [None]
  - CHILLS [None]
  - DEHYDRATION [None]
  - DIZZINESS POSTURAL [None]
  - GENITAL HERPES [None]
  - HYPERHIDROSIS [None]
  - HYPOPHAGIA [None]
  - ORAL HERPES [None]
  - SCROTAL ULCER [None]
  - VIRAL TONSILLITIS [None]
  - WEIGHT DECREASED [None]
